FAERS Safety Report 17398396 (Version 1)
Quarter: 2020Q1

REPORT INFORMATION
  Report Type: Spontaneous
  Country: US (occurrence: US)
  Receive Date: 20200210
  Receipt Date: 20200210
  Transmission Date: 20200409
  Serious: No
  Sender: FDA-Public Use
  Company Number: US-VAYAPHARMA-2018-US-013540

PATIENT
  Age: 7 Year
  Sex: Male
  Weight: 27.22 kg

DRUGS (5)
  1. VIMPAT [Concomitant]
     Active Substance: LACOSAMIDE
  2. ONFI [Concomitant]
     Active Substance: CLOBAZAM
  3. LAMOTRIGINE. [Concomitant]
     Active Substance: LAMOTRIGINE
  4. ZONISAMIDE. [Concomitant]
     Active Substance: ZONISAMIDE
  5. VAYARIN [Suspect]
     Active Substance: DOCONEXENT\ICOSAPENT\PHOSPHATIDYL SERINE
     Indication: ATTENTION DEFICIT/HYPERACTIVITY DISORDER
     Dosage: 2 CAPSULES DAILY
     Route: 048
     Dates: start: 20180712, end: 20180730

REACTIONS (2)
  - Abnormal behaviour [Recovered/Resolved]
  - Defiant behaviour [Recovered/Resolved]

NARRATIVE: CASE EVENT DATE: 20180719
